FAERS Safety Report 9272554 (Version 3)
Quarter: 2014Q2

REPORT INFORMATION
  Report Type: Spontaneous
  Country: JP (occurrence: JP)
  Receive Date: 20130506
  Receipt Date: 20140411
  Transmission Date: 20141212
  Serious: Yes (Life-Threatening, Hospitalization)
  Sender: FDA-Public Use
  Company Number: JP-GLAXOSMITHKLINE-B0881208A

PATIENT
  Age: 86 Year
  Sex: Female

DRUGS (9)
  1. LAMICTAL [Suspect]
     Indication: BIPOLAR DISORDER
     Dosage: 25MG PER DAY
     Route: 048
     Dates: start: 20130221, end: 20130221
  2. LAMICTAL [Suspect]
     Indication: BIPOLAR DISORDER
     Dosage: 50MG PER DAY
     Route: 048
     Dates: start: 20130222, end: 20130319
  3. TAKEPRON [Concomitant]
     Indication: GASTROINTESTINAL HAEMORRHAGE
     Dosage: 30MG PER DAY
     Route: 048
     Dates: start: 20130207, end: 20130319
  4. ROZEREM [Concomitant]
     Indication: BIPOLAR DISORDER
     Dosage: 8MG PER DAY
     Route: 048
     Dates: start: 20130221, end: 20130319
  5. RESLIN [Concomitant]
     Indication: BIPOLAR DISORDER
     Dosage: 25MG PER DAY
     Route: 048
     Dates: start: 20130220, end: 20130319
  6. INDERAL [Concomitant]
     Route: 065
  7. REMINYL [Concomitant]
     Route: 048
  8. MUCOSTA [Concomitant]
     Route: 065
  9. MYSLEE [Concomitant]
     Route: 048

REACTIONS (5)
  - Erythema multiforme [Recovered/Resolved]
  - Eosinophilic colitis [Recovered/Resolved]
  - Gastroenteritis eosinophilic [Recovered/Resolved]
  - Rash [Recovered/Resolved]
  - Diarrhoea [Recovered/Resolved]
